FAERS Safety Report 21702298 (Version 3)
Quarter: 2023Q1

REPORT INFORMATION
  Report Type: Spontaneous
  Country: AU (occurrence: AU)
  Receive Date: 20221208
  Receipt Date: 20230222
  Transmission Date: 20230418
  Serious: Yes (Hospitalization, Other)
  Sender: FDA-Public Use
  Company Number: AU-ABBVIE-4229554

PATIENT
  Sex: Female
  Weight: 75 kg

DRUGS (1)
  1. RINVOQ [Suspect]
     Active Substance: UPADACITINIB
     Indication: Arthritis
     Route: 048

REACTIONS (3)
  - Ileostomy [Unknown]
  - Product residue present [Unknown]
  - Colectomy [Unknown]

NARRATIVE: CASE EVENT DATE: 20220801
